FAERS Safety Report 8826577 (Version 1)
Quarter: 2012Q4

REPORT INFORMATION
  Report Type: 
  Country: JP (occurrence: JP)
  Receive Date: 20121005
  Receipt Date: 20121005
  Transmission Date: 20130627
  Serious: Yes (Other)
  Sender: FDA-Public Use
  Company Number: PHHY2012JP082359

PATIENT
  Age: 31 Year
  Sex: Male
  Weight: 47 kg

DRUGS (11)
  1. CARBAMAZEPINE [Suspect]
     Indication: EPILEPSY
     Route: 048
  2. VALPROIC ACID [Suspect]
     Indication: CONVULSION
  3. CLONAZEPAM [Suspect]
  4. CEFACLOR [Suspect]
     Route: 048
  5. PHENOBARBITAL [Suspect]
     Route: 048
  6. NSAID^S [Concomitant]
     Route: 048
  7. PROPOFOL [Concomitant]
     Dosage: 50 mg, UNK
     Route: 042
  8. SEVOFLURANE [Concomitant]
     Indication: INDUCTION OF ANAESTHESIA
  9. ROPIVACAINE [Concomitant]
     Dosage: 20 ml, UNK
  10. OXYGEN [Concomitant]
  11. NITROUS OXIDE [Concomitant]

REACTIONS (4)
  - Stevens-Johnson syndrome [Unknown]
  - Drug eruption [Unknown]
  - Petit mal epilepsy [Unknown]
  - Epilepsy [Unknown]
